FAERS Safety Report 9052202 (Version 1)
Quarter: 2013Q1

REPORT INFORMATION
  Report Type: Spontaneous
  Country: US (occurrence: US)
  Receive Date: 20130206
  Receipt Date: 20130206
  Transmission Date: 20140127
  Serious: No
  Sender: FDA-Public Use
  Company Number: US-BIOGENIDEC-2013BI009030

PATIENT
  Sex: Female

DRUGS (3)
  1. AVONEX [Suspect]
     Indication: MULTIPLE SCLEROSIS
     Route: 030
  2. AVONEX [Suspect]
     Indication: MULTIPLE SCLEROSIS
     Route: 030
     Dates: start: 20100412, end: 201203
  3. AVONEX [Suspect]
     Indication: MULTIPLE SCLEROSIS
     Route: 030

REACTIONS (19)
  - Hypoaesthesia [Not Recovered/Not Resolved]
  - Musculoskeletal disorder [Not Recovered/Not Resolved]
  - Hemiplegia [Unknown]
  - Weight increased [Unknown]
  - Speech disorder [Unknown]
  - Premenstrual syndrome [Unknown]
  - Hair texture abnormal [Unknown]
  - Neoplasm [Unknown]
  - Swelling [Unknown]
  - Multiple sclerosis [Unknown]
  - Fear [Recovered/Resolved]
  - General symptom [Recovered/Resolved]
  - Abnormal dreams [Recovered/Resolved]
  - Nausea [Unknown]
  - Depression [Unknown]
  - Influenza like illness [Unknown]
  - Headache [Recovered/Resolved]
  - Fatigue [Unknown]
  - Pain [Recovered/Resolved]
